FAERS Safety Report 24383442 (Version 1)
Quarter: 2024Q4

REPORT INFORMATION
  Report Type: Spontaneous
  Country: ES (occurrence: ES)
  Receive Date: 20241001
  Receipt Date: 20241001
  Transmission Date: 20250115
  Serious: Yes (Hospitalization, Other)
  Sender: B BRAUN
  Company Number: ES-B.Braun Medical Inc.-2162256

PATIENT
  Age: 67 Year
  Sex: Female
  Weight: 69.1 kg

DRUGS (23)
  1. CALCIUM GLUCONATE [Suspect]
     Active Substance: CALCIUM GLUCONATE
  2. ETOPOSIDE [Suspect]
     Active Substance: ETOPOSIDE
  3. PIPERACILLIN. [Concomitant]
     Active Substance: PIPERACILLIN SODIUM
  4. METOCLOPRAMIDE HYDROCHLORIDE [Concomitant]
     Active Substance: METOCLOPRAMIDE HYDROCHLORIDE
  5. TAZOBACTAM [Concomitant]
     Active Substance: TAZOBACTAM
  6. METAMIZOLE [Concomitant]
     Active Substance: METAMIZOLE
  7. MAGNESIUM SULFATE [Concomitant]
     Active Substance: MAGNESIUM SULFATE
  8. ONDANSETRON [Concomitant]
     Active Substance: ONDANSETRON
  9. CARBOPLATIN [Suspect]
     Active Substance: CARBOPLATIN
  10. RITUXIMAB [Suspect]
     Active Substance: RITUXIMAB
  11. ERGOCALCIFEROL [Suspect]
     Active Substance: ERGOCALCIFEROL
  12. EPCORITAMAB [Suspect]
     Active Substance: EPCORITAMAB
  13. DEXCHLORPHENIRAMINE [Suspect]
     Active Substance: DEXCHLORPHENIRAMINE
  14. TRIMETHOPRIM [Suspect]
     Active Substance: TRIMETHOPRIM
  15. LORAZEPAM [Suspect]
     Active Substance: LORAZEPAM
  16. OMEPRAZOLE [Suspect]
     Active Substance: OMEPRAZOLE
  17. ACETAMINOPHEN [Suspect]
     Active Substance: ACETAMINOPHEN
  18. ACYCLOVIR [Suspect]
     Active Substance: ACYCLOVIR
  19. APIXABAN [Suspect]
     Active Substance: APIXABAN
  20. PREGABALIN [Suspect]
     Active Substance: PREGABALIN
  21. TRAMADOL [Suspect]
     Active Substance: TRAMADOL
  22. IFOSFAMIDE [Suspect]
     Active Substance: IFOSFAMIDE
  23. SULFAMETHOXAZOLE [Suspect]
     Active Substance: SULFAMETHOXAZOLE

REACTIONS (1)
  - Febrile neutropenia [Recovered/Resolved]
